FAERS Safety Report 10044377 (Version 1)
Quarter: 2014Q1

REPORT INFORMATION
  Report Type: Spontaneous
  Country: IN (occurrence: None)
  Receive Date: 20140326
  Receipt Date: 20140326
  Transmission Date: 20141002
  Serious: Yes (Life-Threatening, Hospitalization)
  Sender: FDA-Public Use
  Company Number: 2014/019

PATIENT
  Age: 60 Year
  Sex: Female

DRUGS (2)
  1. VALPROIC ACID [Suspect]
     Indication: AGITATION
     Dosage: 500 MG/DAY, UNK + UNK
  2. OLANZAPINE (NO PREF. NAME) [Concomitant]

REACTIONS (5)
  - Neuroleptic malignant syndrome [None]
  - Anaemia [None]
  - Leukocytosis [None]
  - Hyponatraemia [None]
  - Blood pressure decreased [None]
